FAERS Safety Report 4401151-8 (Version None)
Quarter: 2004Q3

REPORT INFORMATION
  Report Type: 
  Country: None (occurrence: None)
  Receive Date: 20040907
  Receipt Date: 20031119
  Transmission Date: 20050211
  Serious: No
  Sender: FDA-Public Use
  Company Number: US-BRISTOL-MYERS SQUIBB COMPANY-12439675

PATIENT
  Age: 79 Year
  Sex: Male
  Weight: 82 kg

DRUGS (5)
  1. COUMADIN [Suspect]
     Indication: THROMBOSIS
     Route: 048
     Dates: start: 20010101
  2. LUPRON [Concomitant]
  3. CASODEX [Concomitant]
  4. RITALIN [Concomitant]
  5. TIMOPTIC DROPS [Concomitant]
     Route: 047

REACTIONS (1)
  - ALOPECIA [None]
